FAERS Safety Report 25621331 (Version 1)
Quarter: 2025Q3

REPORT INFORMATION
  Report Type: Other
  Country: EU (occurrence: EU)
  Receive Date: 20250730
  Receipt Date: 20250730
  Transmission Date: 20251020
  Serious: Yes (Hospitalization)
  Sender: ZYDUS PHARM
  Company Number: None

PATIENT

DRUGS (8)
  1. RAMIPRIL [Suspect]
     Active Substance: RAMIPRIL
     Indication: Poisoning deliberate
     Route: 048
     Dates: start: 20250709, end: 20250709
  2. PREGABALIN [Suspect]
     Active Substance: PREGABALIN
     Indication: Poisoning deliberate
     Route: 048
     Dates: start: 20250709, end: 20250709
  3. TRAMADOL [Suspect]
     Active Substance: TRAMADOL
     Indication: Poisoning deliberate
     Route: 048
     Dates: start: 20250709, end: 20250709
  4. ZOPICLONE [Suspect]
     Active Substance: ZOPICLONE
     Indication: Poisoning deliberate
     Route: 048
     Dates: start: 20250709, end: 20250709
  5. OXAZEPAM [Suspect]
     Active Substance: OXAZEPAM
     Indication: Poisoning deliberate
     Route: 048
     Dates: start: 20250709, end: 20250709
  6. LERCANIDIPINE [Suspect]
     Active Substance: LERCANIDIPINE
     Indication: Poisoning deliberate
     Route: 048
     Dates: start: 20250709, end: 20250709
  7. HYDROCHLOROTHIAZIDE [Suspect]
     Active Substance: HYDROCHLOROTHIAZIDE
     Indication: Poisoning deliberate
     Route: 048
     Dates: start: 20250709, end: 20250709
  8. MIANSERIN HYDROCHLORIDE [Suspect]
     Active Substance: MIANSERIN HYDROCHLORIDE
     Indication: Poisoning deliberate
     Route: 048
     Dates: start: 20250709, end: 20250709

REACTIONS (4)
  - Oxygen saturation decreased [Recovered/Resolved]
  - Pneumonia aspiration [Recovered/Resolved]
  - Coma [Recovered/Resolved]
  - Poisoning deliberate [Recovered/Resolved]

NARRATIVE: CASE EVENT DATE: 20250709
